FAERS Safety Report 19002059 (Version 1)
Quarter: 2021Q1

REPORT INFORMATION
  Report Type: Spontaneous
  Country: US (occurrence: US)
  Receive Date: 20210311
  Receipt Date: 20210311
  Transmission Date: 20210420
  Serious: Yes (Other)
  Sender: FDA-Public Use
  Company Number: None

PATIENT
  Age: 45 Year
  Sex: Female

DRUGS (1)
  1. PROMETRIUM 100MG GENERIC [Suspect]
     Active Substance: PROGESTERONE
     Indication: MENOPAUSAL SYMPTOMS

REACTIONS (5)
  - Dizziness [None]
  - Tendonitis [None]
  - Depressed mood [None]
  - Hot flush [None]
  - Asthenia [None]
